FAERS Safety Report 5633838-3 (Version None)
Quarter: 2008Q1

REPORT INFORMATION
  Report Type: 
  Country: None (occurrence: None)
  Receive Date: 20080219
  Receipt Date: 20080205
  Transmission Date: 20080703
  Serious: Yes (Death, Life-Threatening, Other)
  Sender: FDA-Public Use
  Company Number: 2007US001924

PATIENT
  Age: 55 Year
  Sex: Male

DRUGS (18)
  1. AMBISOME [Suspect]
     Indication: SYSTEMIC CANDIDA
     Dosage: 200 MG, UID/QD, IV DRIP
     Route: 041
     Dates: start: 20070606, end: 20070629
  2. PROGRAF [Suspect]
     Indication: DRUG USE FOR UNKNOWN INDICATION
     Dosage: 0.6 MG, UID/QD, IV DRIP
     Route: 041
  3. MYCAMINE [Concomitant]
  4. NEUPOGEN [Concomitant]
  5. VANCOMYCIN HYDROCHLORIDE [Suspect]
     Indication: DRUG USE FOR UNKNOWN INDICATION
     Dosage: 1 G, UID/QD, IV DRIP
     Route: 041
     Dates: start: 20070615
  6. GANCICLOVIR [Suspect]
     Indication: DRUG USE FOR UNKNOWN INDICATION
     Dosage: 120 MG, UID/QD
     Dates: start: 20070508
  7. TARGOCID [Suspect]
     Indication: DRUG USE FOR UNKNOWN INDICATION
  8. BACTRIM [Suspect]
     Indication: DRUG USE FOR UNKNOWN INDICATION
     Dates: start: 20070606
  9. PREDNISOLONE [Concomitant]
  10. FRAGMIN [Concomitant]
  11. OMEPRAL [Concomitant]
  12. VFEMD (VORICONAZOLE) [Concomitant]
  13. ACYCLOVIR [Concomitant]
  14. MAXIPIME (CEFEPMIE HYDROCHLORIDE) [Concomitant]
  15. VICCILIN-S [Concomitant]
  16. CIPROFLOXACIN HCL [Concomitant]
  17. MEROPENEM (MEROPENEM) [Concomitant]
  18. ANTITHROMBIN III (ANTITHROMBIN III) [Concomitant]

REACTIONS (17)
  - ALANINE AMINOTRANSFERASE INCREASED [None]
  - ASPARTATE AMINOTRANSFERASE INCREASED [None]
  - BLOOD BILIRUBIN INCREASED [None]
  - BLOOD CREATINE INCREASED [None]
  - BLOOD POTASSIUM DECREASED [None]
  - BLOOD UREA INCREASED [None]
  - BLOOD URINE PRESENT [None]
  - HAEMODIALYSIS [None]
  - INTERSTITIAL LUNG DISEASE [None]
  - LIVER DISORDER [None]
  - OCCULT BLOOD [None]
  - PNEUMONIA CYTOMEGALOVIRAL [None]
  - RENAL DISORDER [None]
  - RENAL IMPAIRMENT [None]
  - RESPIRATORY FAILURE [None]
  - SEPSIS [None]
  - SHOCK [None]
